FAERS Safety Report 9502759 (Version 2)
Quarter: 2013Q3

REPORT INFORMATION
  Report Type: Spontaneous
  Country: FR (occurrence: FR)
  Receive Date: 20130906
  Receipt Date: 20130906
  Transmission Date: 20140515
  Serious: Yes (Hospitalization, Other)
  Sender: FDA-Public Use
  Company Number: FR-UCBSA-080579

PATIENT
  Age: 38 Year
  Sex: Female

DRUGS (8)
  1. KEPPRA [Suspect]
     Indication: GRAND MAL CONVULSION
     Dosage: DAILY DOSE-1.5 G
     Route: 048
     Dates: start: 20120418, end: 201302
  2. KEPPRA [Suspect]
     Indication: GRAND MAL CONVULSION
     Dosage: DAILY DOSE-2.5 G
     Route: 048
     Dates: start: 201302, end: 20130708
  3. ATARAX [Suspect]
     Indication: PRURITUS
     Dosage: DAILY DOSE: 25MG
     Route: 048
     Dates: start: 20130219, end: 20130226
  4. ATARAX [Suspect]
     Indication: INSOMNIA
     Dosage: DAILY DOSE: 25MG
     Route: 048
     Dates: start: 20130219, end: 20130226
  5. FOLIC ACID [Concomitant]
     Indication: SUPPLEMENTATION THERAPY
     Dosage: DAILY DOSE-5 MG
     Route: 048
     Dates: start: 201211, end: 20130527
  6. DAFALGAN [Concomitant]
     Indication: PAIN
     Dosage: DAILY DOSE  1 G
     Route: 048
  7. FUMAFER [Concomitant]
     Indication: SUPPLEMENTATION THERAPY
     Dosage: DAILY DOSE: 80MG
     Route: 048
     Dates: start: 201302, end: 20130527
  8. LAMICTAL [Concomitant]
     Indication: GRAND MAL CONVULSION
     Dosage: 25MF DAILY PROGRESSIVELY INCREASED UPTO 150MG DAILY
     Route: 048
     Dates: start: 20130306

REACTIONS (4)
  - Grand mal convulsion [Recovered/Resolved]
  - Fall [Unknown]
  - Pregnancy [Recovered/Resolved]
  - Exposure during pregnancy [Recovered/Resolved]
